FAERS Safety Report 8966730 (Version 1)
Quarter: 2012Q4

REPORT INFORMATION
  Report Type: Report from Study
  Country: CA (occurrence: CA)
  Receive Date: 20121217
  Receipt Date: 20121217
  Transmission Date: 20130627
  Serious: Yes (Other)
  Sender: FDA-Public Use
  Company Number: CA-JNJFOC-20121205151

PATIENT
  Age: 48 Year
  Sex: Male
  Weight: 81.9 kg

DRUGS (8)
  1. REMICADE [Suspect]
     Indication: CROHN^S DISEASE
     Dosage: since 6 years
     Route: 042
  2. METHOTREXATE [Concomitant]
     Route: 065
  3. RISEDRONATE [Concomitant]
     Route: 065
  4. RABEPRAZOLE [Concomitant]
     Route: 065
  5. VITAMIN D [Concomitant]
     Route: 065
  6. FOLIC ACID [Concomitant]
     Route: 065
  7. B12 [Concomitant]
     Route: 065
  8. TYLENOL ES [Concomitant]
     Dosage: as necessary
     Route: 065

REACTIONS (1)
  - Oesophagogastroduodenoscopy [Unknown]
